FAERS Safety Report 6803370-X (Version None)
Quarter: 2010Q2

REPORT INFORMATION
  Report Type: 
  Country: None (occurrence: None)
  Receive Date: 20100628
  Receipt Date: 20100616
  Transmission Date: 20101027
  Serious: Yes (Hospitalization)
  Sender: FDA-Public Use
  Company Number: JP-PFIZER INC-2010075478

PATIENT
  Age: 69 Year
  Sex: Female

DRUGS (3)
  1. ZITHROMAC SR [Suspect]
     Indication: PHARYNGITIS
     Dosage: 2 G, 1X/DAY
     Route: 048
     Dates: start: 20100612
  2. AVELOX [Concomitant]
     Indication: PHARYNGITIS
     Dosage: UNK
     Dates: start: 20100604
  3. DRUG, UNSPECIFIED [Concomitant]
     Dosage: UNK
     Route: 042
     Dates: start: 20100612

REACTIONS (5)
  - ALANINE AMINOTRANSFERASE INCREASED [None]
  - ASPARTATE AMINOTRANSFERASE INCREASED [None]
  - GAMMA-GLUTAMYLTRANSFERASE INCREASED [None]
  - NAUSEA [None]
  - PNEUMONIA [None]
